FAERS Safety Report 18399392 (Version 1)
Quarter: 2020Q4

REPORT INFORMATION
  Report Type: Spontaneous
  Country: US (occurrence: US)
  Receive Date: 20201019
  Receipt Date: 20201019
  Transmission Date: 20210114
  Serious: No
  Sender: FDA-Public Use
  Company Number: US-MYLANLABS-2020M1087354

PATIENT
  Sex: Female

DRUGS (2)
  1. COLCHICINE TABLETS USP [Suspect]
     Active Substance: COLCHICINE
     Indication: PRODUCT USED FOR UNKNOWN INDICATION
     Dosage: ONE-HALF TABLET BY MOUTH ONCE DAILY
     Route: 048
  2. COLCHICINE TABLETS USP [Suspect]
     Active Substance: COLCHICINE
     Dosage: ONE AND ONE-HALF TABLET (0.9 MG) IN MORNING, 1 TABLET AT NIGHT
     Route: 048

REACTIONS (2)
  - Wrong technique in product usage process [Unknown]
  - Therapeutic product effect incomplete [Unknown]
